FAERS Safety Report 5847698-9 (Version None)
Quarter: 2008Q3

REPORT INFORMATION
  Report Type: 
  Country: None (occurrence: None)
  Receive Date: 20080818
  Receipt Date: 20080814
  Transmission Date: 20090109
  Serious: Yes (Death)
  Sender: FDA-Public Use
  Company Number: US-NOVOPROD-278414

PATIENT
  Age: 20 Year
  Sex: Male

DRUGS (4)
  1. NOVOSEVEN [Suspect]
     Indication: GUN SHOT WOUND
     Dosage: 7 MG, 2 DOSES
     Route: 042
  2. RED BLOOD CELLS [Concomitant]
     Indication: PELVIC HAEMORRHAGE
     Dosage: 34 U, UNK
  3. FRESH FROZEN PLASMA [Concomitant]
     Dosage: 19 U, UNK
  4. PLATELETS [Concomitant]
     Dosage: 9 U, UNK

REACTIONS (1)
  - PELVIC HAEMORRHAGE [None]
